FAERS Safety Report 9109140 (Version 3)
Quarter: 2013Q3

REPORT INFORMATION
  Report Type: Report from Study
  Country: JP (occurrence: JP)
  Receive Date: 20130222
  Receipt Date: 20130702
  Transmission Date: 20140515
  Serious: Yes (Hospitalization)
  Sender: FDA-Public Use
  Company Number: JP-JNJFOC-20130210417

PATIENT
  Age: 64 Year
  Sex: Male

DRUGS (8)
  1. USTEKINUMAB [Suspect]
     Indication: PSORIASIS
     Route: 058
     Dates: start: 20120607
  2. USTEKINUMAB [Suspect]
     Indication: PSORIASIS
     Route: 058
     Dates: start: 20120705
  3. USTEKINUMAB [Suspect]
     Indication: PSORIASIS
     Route: 058
     Dates: start: 20120927
  4. CLARITIN [Concomitant]
     Indication: PSORIASIS
     Route: 048
     Dates: start: 20120518
  5. ANTEBATE [Concomitant]
     Indication: PSORIASIS
     Route: 061
  6. DOVONEX [Concomitant]
     Indication: PSORIASIS
     Route: 062
  7. LIDOMEX [Concomitant]
     Indication: PSORIASIS
     Route: 062
  8. DERMOVATE [Concomitant]
     Indication: PSORIASIS
     Route: 062

REACTIONS (1)
  - Hepatocellular carcinoma [Recovering/Resolving]
